FAERS Safety Report 13037103 (Version 1)
Quarter: 2016Q4

REPORT INFORMATION
  Report Type: Spontaneous
  Country: US (occurrence: US)
  Receive Date: 20161216
  Receipt Date: 20161216
  Transmission Date: 20170207
  Serious: Yes (Hospitalization)
  Sender: FDA-Public Use
  Company Number: US-BEH-2016076049

PATIENT
  Age: 73 Year
  Sex: Male
  Weight: 77.98 kg

DRUGS (28)
  1. HIZENTRA [Suspect]
     Active Substance: HUMAN IMMUNOGLOBULIN G
     Dosage: UNK
     Route: 058
  2. VITAMINS WITH MINERALS [Concomitant]
     Active Substance: MINERALS\VITAMINS
  3. LASIX [Concomitant]
     Active Substance: FUROSEMIDE
  4. POTASSIUM CHLORIDE. [Concomitant]
     Active Substance: POTASSIUM CHLORIDE
  5. EPIPEN [Concomitant]
     Active Substance: EPINEPHRINE
  6. FLONASE [Concomitant]
     Active Substance: FLUTICASONE PROPIONATE
  7. LIPITOR [Concomitant]
     Active Substance: ATORVASTATIN CALCIUM
  8. LEVEMIR [Concomitant]
     Active Substance: INSULIN DETEMIR
  9. CALCIUM CARBONATE. [Concomitant]
     Active Substance: CALCIUM CARBONATE
  10. XANAX [Concomitant]
     Active Substance: ALPRAZOLAM
  11. DOXYCYCLINE. [Concomitant]
     Active Substance: DOXYCYCLINE
  12. FISH OIL W/VITAMIN D NOS [Concomitant]
  13. CRESTOR [Concomitant]
     Active Substance: ROSUVASTATIN CALCIUM
  14. BACTROBAN [Concomitant]
     Active Substance: MUPIROCIN\MUPIROCIN CALCIUM
  15. HIZENTRA [Suspect]
     Active Substance: HUMAN IMMUNOGLOBULIN G
     Dosage: UNK
     Route: 058
  16. ASPIRIN. [Concomitant]
     Active Substance: ASPIRIN
  17. FINASTERIDE. [Concomitant]
     Active Substance: FINASTERIDE
  18. EPINEPHRINE. [Concomitant]
     Active Substance: EPINEPHRINE
  19. DEXILANT [Concomitant]
     Active Substance: DEXLANSOPRAZOLE
  20. SODIUM CHLORIDE. [Concomitant]
     Active Substance: SODIUM CHLORIDE
  21. HIZENTRA [Suspect]
     Active Substance: HUMAN IMMUNOGLOBULIN G
     Indication: IMMUNODEFICIENCY COMMON VARIABLE
     Dosage: 10 G, QW
     Route: 058
     Dates: start: 20101103
  22. ADVIL (MEFENAMIC ACID) [Concomitant]
     Active Substance: MEFENAMIC ACID
  23. APIDRA SOLOSTAR [Concomitant]
     Active Substance: INSULIN GLULISINE
  24. IBUPROFEN. [Concomitant]
     Active Substance: IBUPROFEN
  25. TAMSULOSIN [Concomitant]
     Active Substance: TAMSULOSIN
  26. DIPHENHYDRAMINE. [Concomitant]
     Active Substance: DIPHENHYDRAMINE
  27. TYLENOL [Concomitant]
     Active Substance: ACETAMINOPHEN
  28. LYSINE [Concomitant]
     Active Substance: LYSINE

REACTIONS (1)
  - Implantable defibrillator insertion [Unknown]

NARRATIVE: CASE EVENT DATE: 20161202
